FAERS Safety Report 26099901 (Version 2)
Quarter: 2025Q4

REPORT INFORMATION
  Report Type: Spontaneous
  Country: US (occurrence: US)
  Receive Date: 20251128
  Receipt Date: 20251211
  Transmission Date: 20260118
  Serious: No
  Sender: LUPIN
  Company Number: US-LUPIN PHARMACEUTICALS INC.-2025-10571

PATIENT
  Age: 76 Year
  Weight: 113.38 kg

DRUGS (5)
  1. LEVALBUTEROL TARTRATE [Suspect]
     Active Substance: LEVALBUTEROL TARTRATE
     Indication: Asthma
     Dosage: PRN
  2. ROSUVASTATIN [Concomitant]
     Active Substance: ROSUVASTATIN
     Indication: Blood cholesterol abnormal
     Dosage: UNK
     Route: 065
  3. PANTOPRAZOLE [Concomitant]
     Active Substance: PANTOPRAZOLE
     Indication: Ulcer
     Dosage: UNK
     Route: 065
  4. ROPINIROLE [Concomitant]
     Active Substance: ROPINIROLE
     Indication: Restless legs syndrome
     Dosage: UNK
     Route: 065
  5. LOSARTAN [Concomitant]
     Active Substance: LOSARTAN
     Indication: Blood pressure abnormal
     Dosage: UNK
     Route: 065

REACTIONS (3)
  - Cough [Unknown]
  - Device delivery system issue [Unknown]
  - Drug dose omission by device [Unknown]
